FAERS Safety Report 8443342-5 (Version None)
Quarter: 2012Q2

REPORT INFORMATION
  Report Type: 
  Country: None (occurrence: None)
  Receive Date: 20120618
  Receipt Date: 20120606
  Transmission Date: 20120825
  Serious: Yes (Other)
  Sender: FDA-Public Use
  Company Number: IN-GE HEALTHCARE MEDICAL DIAGNOSTICS-OMPQ-NO-1206L-0570

PATIENT
  Age: 53 Year
  Sex: Female

DRUGS (2)
  1. OMNIPAQUE 140 [Suspect]
     Indication: PANCREATITIS
     Route: 042
     Dates: start: 20100101, end: 20100101
  2. STEROIDS (UNSPECIFIED) [Concomitant]

REACTIONS (6)
  - POSTERIOR REVERSIBLE ENCEPHALOPATHY SYNDROME [None]
  - GRAND MAL CONVULSION [None]
  - HEMIPARESIS [None]
  - BLINDNESS TRANSIENT [None]
  - CONFUSIONAL STATE [None]
  - DISORIENTATION [None]
